FAERS Safety Report 19126528 (Version 1)
Quarter: 2021Q2

REPORT INFORMATION
  Report Type: Spontaneous
  Country: US (occurrence: US)
  Receive Date: 20210412
  Receipt Date: 20210412
  Transmission Date: 20210717
  Serious: No
  Sender: FDA-Public Use
  Company Number: US-GILEAD-2021-0523480

PATIENT
  Sex: Male

DRUGS (11)
  1. BACLOFEN. [Concomitant]
     Active Substance: BACLOFEN
  2. CONSTULOSE [Concomitant]
     Active Substance: LACTULOSE
  3. SILDENAFIL. [Concomitant]
     Active Substance: SILDENAFIL
  4. POLYETHYLENE GLYCOL [MACROGOL] [Concomitant]
     Active Substance: POLYETHYLENE GLYCOLS
  5. FUROSEMIDE. [Concomitant]
     Active Substance: FUROSEMIDE
  6. DOK [Concomitant]
     Active Substance: DOCUSATE SODIUM
  7. LISINOPRIL. [Concomitant]
     Active Substance: LISINOPRIL
  8. SOFOSBUVIR;VELPATASVIR [Suspect]
     Active Substance: SOFOSBUVIR\VELPATASVIR
     Indication: CHRONIC HEPATITIS C
     Dosage: 1 DOSAGE FORM, QD
     Route: 048
     Dates: start: 202103
  9. TESTOSTERONE. [Concomitant]
     Active Substance: TESTOSTERONE
  10. GABAPENTIN. [Concomitant]
     Active Substance: GABAPENTIN
  11. ALLOPURINOL. [Concomitant]
     Active Substance: ALLOPURINOL

REACTIONS (3)
  - Somnolence [Not Recovered/Not Resolved]
  - Headache [Not Recovered/Not Resolved]
  - Fatigue [Not Recovered/Not Resolved]
